FAERS Safety Report 9316846 (Version 1)
Quarter: 2012Q4

REPORT INFORMATION
  Report Type: Spontaneous
  Country: US (occurrence: None)
  Receive Date: 20121218
  Receipt Date: 20121218
  Transmission Date: 20130627
  Serious: Yes (Other)
  Sender: FDA-Public Use
  Company Number: USA/USA/12/0026945

PATIENT
  Age: 68 Year
  Sex: Female

DRUGS (4)
  1. CLOPIDOGREL [Suspect]
     Indication: STROKE
     Dates: start: 20121002
  2. PROTONIX [Suspect]
     Indication: DRUG USE FOR  UNKNOWN INDICATION
     Dates: start: 20120724
  3. DULERA (DULERA) [Concomitant]
  4. PEPCID (FAMOTIDINE) [Concomitant]

REACTIONS (1)
  - Thrombosis [None]
